FAERS Safety Report 4283420-8 (Version None)
Quarter: 2004Q1

REPORT INFORMATION
  Report Type: 
  Country: None (occurrence: None)
  Receive Date: 20040115
  Receipt Date: 20030821
  Transmission Date: 20041129
  Serious: Yes (Other)
  Sender: FDA-Public Use
  Company Number: US-JNJFOC-20030707752

PATIENT
  Age: 63 Year
  Sex: Male

DRUGS (2)
  1. DOXIL [Suspect]
     Indication: CARCINOMA
     Dosage: 40 MG, INTRVAVENOUS
     Route: 042
     Dates: start: 20030301, end: 20030301
  2. CYTOXIN () CYCLOPHOSPHAMIDE [Concomitant]

REACTIONS (4)
  - BACK PAIN [None]
  - BLOOD PRESSURE INCREASED [None]
  - ERYTHEMA [None]
  - HYPERSENSITIVITY [None]
